FAERS Safety Report 12079532 (Version 3)
Quarter: 2016Q1

REPORT INFORMATION
  Report Type: Spontaneous
  Country: US (occurrence: US)
  Receive Date: 20160216
  Receipt Date: 20160226
  Transmission Date: 20160526
  Serious: Yes (Hospitalization, Other)
  Sender: FDA-Public Use
  Company Number: US-PFIZER INC-2016088550

PATIENT
  Age: 26 Year
  Sex: Male

DRUGS (1)
  1. DEPO-MEDROL [Suspect]
     Active Substance: METHYLPREDNISOLONE ACETATE
     Indication: COMPRESSION FRACTURE
     Dosage: UNK
     Route: 008
     Dates: start: 2001, end: 2001

REACTIONS (6)
  - Product use issue [Unknown]
  - Spinal disorder [Unknown]
  - Optic nerve injury [Unknown]
  - Arachnoiditis [Not Recovered/Not Resolved]
  - Wrong technique in product usage process [Unknown]
  - Headache [Unknown]

NARRATIVE: CASE EVENT DATE: 2001
